FAERS Safety Report 11746271 (Version 1)
Quarter: 2015Q4

REPORT INFORMATION
  Report Type: Report from Study
  Country: US (occurrence: US)
  Receive Date: 20151117
  Receipt Date: 20151117
  Transmission Date: 20160304
  Serious: Yes (Hospitalization)
  Sender: FDA-Public Use
  Company Number: US-ABBVIE-15K-163-1497948-00

PATIENT
  Age: 53 Year
  Sex: Male
  Weight: 81.72 kg

DRUGS (1)
  1. HUMIRA [Suspect]
     Active Substance: ADALIMUMAB
     Indication: PSORIASIS
     Route: 058
     Dates: start: 201508, end: 201511

REACTIONS (3)
  - Hypoaesthesia [Unknown]
  - Peripheral swelling [Unknown]
  - Extrasystoles [Unknown]

NARRATIVE: CASE EVENT DATE: 201511
